FAERS Safety Report 7225121-X (Version None)
Quarter: 2011Q1

REPORT INFORMATION
  Report Type: 
  Country: None (occurrence: None)
  Receive Date: 20110113
  Receipt Date: 20110103
  Transmission Date: 20110831
  Serious: Yes (Hospitalization, Congenital Anomaly)
  Sender: FDA-Public Use
  Company Number: A0699515A

PATIENT
  Sex: Female
  Weight: 3 kg

DRUGS (4)
  1. PAXIL [Suspect]
     Dates: start: 19960101
  2. PAXIL CR [Suspect]
     Dosage: 25MG UNKNOWN
     Route: 048
     Dates: start: 20030206
  3. PAROXETINE HCL [Suspect]
     Route: 048
     Dates: start: 20030916
  4. VITAMIN AND MINERAL PRENATAL SUPPLEMENT W/ FOLIC ACID CAP [Concomitant]

REACTIONS (11)
  - ARNOLD-CHIARI MALFORMATION [None]
  - DRUG EXPOSURE DURING PREGNANCY [None]
  - HYDROCEPHALUS [None]
  - VESICOURETERIC REFLUX [None]
  - NEUROGENIC BOWEL [None]
  - CONVULSION [None]
  - SPINA BIFIDA [None]
  - INFECTION [None]
  - NEUROGENIC BLADDER [None]
  - CONGENITAL CENTRAL NERVOUS SYSTEM ANOMALY [None]
  - TRANSPOSITION OF THE GREAT VESSELS [None]
